FAERS Safety Report 22005920 (Version 1)
Quarter: 2023Q1

REPORT INFORMATION
  Report Type: Spontaneous
  Country: US (occurrence: None)
  Receive Date: 20230216
  Receipt Date: 20230216
  Transmission Date: 20230418
  Serious: Yes (Other)
  Sender: FDA-Public Use
  Company Number: None

PATIENT
  Age: 46 Year
  Sex: Female
  Weight: 77.4 kg

DRUGS (1)
  1. SUTAB [Suspect]
     Active Substance: MAGNESIUM SULFATE\POTASSIUM CHLORIDE\SODIUM SULFATE
     Indication: Bowel preparation
     Dosage: OTHER QUANTITY : 24 TABLET(S);?OTHER FREQUENCY : 12 TAB AT 5 +9PM;?
     Route: 048
     Dates: start: 20230215, end: 20230215

REACTIONS (14)
  - Feeling cold [None]
  - Chills [None]
  - Flushing [None]
  - Skin discolouration [None]
  - Cardiovascular disorder [None]
  - Tremor [None]
  - Muscle spasms [None]
  - Renal disorder [None]
  - Therapeutic product effect decreased [None]
  - Vomiting [None]
  - Eye swelling [None]
  - Eye pain [None]
  - Photophobia [None]
  - Corneal oedema [None]

NARRATIVE: CASE EVENT DATE: 20230215
